FAERS Safety Report 8790002 (Version 1)
Quarter: 2012Q4

REPORT INFORMATION
  Report Type: 
  Country: US (occurrence: US)
  Receive Date: 20120917
  Receipt Date: 20120917
  Transmission Date: 20130627
  Serious: Yes (Other)
  Sender: FDA-Public Use
  Company Number: US-BAYER-2012-095530

PATIENT
  Sex: Female

DRUGS (2)
  1. BETASERON [Suspect]
     Indication: MULTIPLE SCLEROSIS
     Dosage: 0.25 mg, QOD
     Dates: start: 201108
  2. LEXAPRO [Concomitant]
     Indication: DEPRESSION

REACTIONS (10)
  - Multiple sclerosis [None]
  - Hypoaesthesia [None]
  - Pain in extremity [None]
  - Burning sensation [None]
  - Paraesthesia [None]
  - Visual impairment [None]
  - Injection site rash [None]
  - Injection site pain [None]
  - Injection site warmth [None]
  - Injection site mass [None]
